FAERS Safety Report 17142675 (Version 1)
Quarter: 2019Q4

REPORT INFORMATION
  Report Type: Spontaneous
  Country: SE (occurrence: SE)
  Receive Date: 20191211
  Receipt Date: 20191211
  Transmission Date: 20200122
  Serious: Yes (Other)
  Sender: FDA-Public Use
  Company Number: SE-REGENERON PHARMACEUTICALS, INC.-2019-62509

PATIENT

DRUGS (1)
  1. EYLEA [Suspect]
     Active Substance: AFLIBERCEPT
     Indication: PRODUCT USED FOR UNKNOWN INDICATION
     Dosage: UNK UNK, ONCE

REACTIONS (7)
  - Retinal artery occlusion [Unknown]
  - Visual impairment [Unknown]
  - Wrong technique in product usage process [Unknown]
  - Intraocular pressure increased [Recovered/Resolved]
  - Product packaging quantity issue [Unknown]
  - Blindness transient [Unknown]
  - Overdose [Unknown]
